FAERS Safety Report 11195047 (Version 2)
Quarter: 2016Q3

REPORT INFORMATION
  Report Type: Spontaneous
  Country: BR (occurrence: BR)
  Receive Date: 20150617
  Receipt Date: 20160729
  Transmission Date: 20161109
  Serious: Yes (Other)
  Sender: FDA-Public Use
  Company Number: BR-AMGEN-BRACT2012031071

PATIENT
  Age: 53 Year
  Sex: Female
  Weight: 85 kg

DRUGS (55)
  1. MIOFLEX                            /06780601/ [Concomitant]
     Indication: ARTHRITIS
     Dosage: UNK
  2. VENLAFAXINE [Concomitant]
     Active Substance: VENLAFAXINE HYDROCHLORIDE
     Indication: DEPRESSION
     Dosage: UNK
  3. PROPANOLOL [Concomitant]
     Active Substance: PROPRANOLOL HYDROCHLORIDE
     Indication: HYPERTENSION
     Dosage: UNK
  4. ANCORON [Concomitant]
     Active Substance: AMIODARONE HYDROCHLORIDE
     Dosage: 10 MG, 1X/DAY (AT NIGHT)
  5. CORDIRON [Concomitant]
     Dosage: 10 MG, 1X/DAY
  6. PRELONE [Concomitant]
     Active Substance: PREDNISOLONE
     Indication: ARTHRITIS
     Dosage: UNK
  7. AZOPT [Concomitant]
     Active Substance: BRINZOLAMIDE
     Indication: GLAUCOMA
     Dosage: UNK
     Dates: start: 2007
  8. METHOTREXATE. [Concomitant]
     Active Substance: METHOTREXATE
     Indication: ARTHRITIS
     Dosage: UNK
  9. METHOTREXATE. [Concomitant]
     Active Substance: METHOTREXATE
     Dosage: 1 DF, WEEKLY
  10. FOLIC ACID. [Concomitant]
     Active Substance: FOLIC ACID
     Dosage: 5 MG, DAILY EXCEPT ON THE DAY OF METHOTREXATE
  11. SOMALGIN [Concomitant]
     Active Substance: ASPIRIN\DIHYDROXYALUMINUM AMINOACETATE ANHYDROUS\MAGNESIUM CARBONATE
     Dosage: 325 MG, 1X/DAY AT LUNCH
  12. FLUOXETINE [Concomitant]
     Active Substance: FLUOXETINE HYDROCHLORIDE
     Indication: DEPRESSION
     Dosage: STRENGTH 20MG, UNK
     Dates: start: 2007
  13. MIOFLEX [Concomitant]
     Active Substance: SUCCINYLCHOLINE CHLORIDE
     Indication: ARTHRITIS
     Dosage: UNK
  14. CALCIUM CARBONATE W/ERGOCALCIFEROL [Concomitant]
     Dosage: (1000 MG CALCIUM CARBONATE + 4000 IU VIT D 01 TABLET AT NIGHT)
  15. ENBREL [Suspect]
     Active Substance: ETANERCEPT
     Indication: RHEUMATOID ARTHRITIS
     Dosage: 25 MG,1 FLASK TWICE A WEEK
     Route: 058
     Dates: start: 20081008, end: 201109
  16. PROPANOLOL                         /00030001/ [Concomitant]
     Active Substance: PROPRANOLOL HYDROCHLORIDE
     Indication: HYPERTENSION
     Dosage: UNK
  17. APRESOLINE HYDROCHLORIDE [Concomitant]
     Active Substance: HYDRALAZINE HYDROCHLORIDE
     Indication: HYPERTENSION
     Dosage: 50 MG, 3X/DAY (8/8H)
     Dates: start: 2007
  18. APRESOLINE HYDROCHLORIDE [Concomitant]
     Active Substance: HYDRALAZINE HYDROCHLORIDE
     Indication: BLOOD PRESSURE INCREASED
     Dosage: UNK
  19. DIOVAN [Concomitant]
     Active Substance: VALSARTAN
     Indication: BLOOD PRESSURE INCREASED
     Dosage: UNK
  20. LANSOPRAZOLE. [Concomitant]
     Active Substance: LANSOPRAZOLE
     Dosage: 40 MG, 1 TABLET IN FASTING
  21. CALTRATE [Concomitant]
     Active Substance: CALCIUM CARBONATE
     Indication: ARTHRITIS
     Dosage: UNK
  22. METHOTREXATE. [Concomitant]
     Active Substance: METHOTREXATE
     Dosage: 2.5 MG, 2X/DAY (3 TABLETS 12/12H)
  23. PANTOPRAZOLE [Concomitant]
     Active Substance: PANTOPRAZOLE SODIUM
     Indication: GASTRITIS
     Dosage: STRENGTH 40 MG, UNK
     Dates: start: 2007
  24. ZETRON [Concomitant]
     Indication: DEPRESSION
     Dosage: STRENGTH 150MG, UNK
     Dates: start: 2007
  25. HIDROGEL [Concomitant]
     Indication: VEIN DISORDER
     Dosage: UNK
  26. ZANIDIP [Concomitant]
     Active Substance: LERCANIDIPINE HYDROCHLORIDE
     Indication: BLOOD PRESSURE INCREASED
     Dosage: UNK
  27. METRIX [Concomitant]
     Dosage: 500 MG, AT NIGHT
  28. AMATO [Concomitant]
     Active Substance: TOPIRAMATE
     Dosage: 25 MG, DAILY AT NIGHT
  29. ENALAPRIL [Concomitant]
     Active Substance: ENALAPRIL
     Indication: HYPERTENSION
     Dosage: UNK
  30. CLOPIDOGREL [Concomitant]
     Active Substance: CLOPIDOGREL BISULFATE
     Dosage: UNK
  31. LANSOPRAZOLE. [Concomitant]
     Active Substance: LANSOPRAZOLE
     Dosage: UNK
  32. LYRICA [Concomitant]
     Active Substance: PREGABALIN
     Indication: ARTHRITIS
     Dosage: STRENGTH ^150^ (UNSPECIFIED UNIT), UNK
     Dates: start: 2007
  33. ZANIDIP [Concomitant]
     Active Substance: LERCANIDIPINE HYDROCHLORIDE
     Indication: HYPERTENSION
     Dosage: STRENGTH 10MG, UNK
     Dates: start: 2010
  34. GLUCOSAMINE SULFATE [Concomitant]
     Active Substance: GLUCOSAMINE SULFATE
     Dosage: 500 MG, 3X/DAY 1 TABLET AFTER BREAKFAST, LUNCH AND DINNER
  35. ENBREL [Suspect]
     Active Substance: ETANERCEPT
     Dosage: 50 MG, WEEKLY
     Route: 058
     Dates: start: 201209
  36. CONDROFLEX [Concomitant]
     Active Substance: CHONDROITIN SULFATE (BOVINE)\GLUCOSAMINE SULFATE
     Indication: ARTHRITIS
     Dosage: UNK
  37. FAMOX [Concomitant]
     Indication: GASTRITIS
     Dosage: STRENGTH 40 MG, UNK
  38. PAROXETINE. [Concomitant]
     Active Substance: PAROXETINE
     Indication: DEPRESSION
     Dosage: 20 MG, DAILY IN THE MORNING
     Dates: start: 2007
  39. SIMVASTATIN. [Concomitant]
     Active Substance: SIMVASTATIN
     Indication: VEIN DISORDER
     Dosage: UNK
  40. FOLIC ACID. [Concomitant]
     Active Substance: FOLIC ACID
     Indication: ARTHRITIS
     Dosage: UNK
  41. XALATAN [Concomitant]
     Active Substance: LATANOPROST
     Indication: GLAUCOMA
     Dosage: UNK
     Dates: start: 2007
  42. VENLAFAXINE [Concomitant]
     Active Substance: VENLAFAXINE HYDROCHLORIDE
     Indication: VEIN DISORDER
     Dosage: 75 MG
     Dates: start: 2007
  43. HARPADOL [Concomitant]
     Indication: ARTHRITIS
     Dosage: UNK
  44. HUMECTOL D [Concomitant]
     Indication: CONSTIPATION
     Dosage: UNK
  45. SOMALGIN [Concomitant]
     Active Substance: ASPIRIN\DIHYDROXYALUMINUM AMINOACETATE ANHYDROUS\MAGNESIUM CARBONATE
     Dosage: UNK
  46. FAMOTIDINE. [Concomitant]
     Active Substance: FAMOTIDINE
     Indication: GASTRITIS
     Dosage: 40 MG, 2X/DAY AT BREAKFAST AND AT DINNER
     Dates: start: 2007
  47. HYPERIUM [Concomitant]
     Active Substance: RILMENIDINE PHOSPHATE
     Indication: BLOOD PRESSURE INCREASED
     Dosage: UNK
     Dates: start: 2010
  48. TAMARINE [Concomitant]
     Indication: CONSTIPATION
     Dosage: UNK
  49. PREDNISONE. [Concomitant]
     Active Substance: PREDNISONE
     Dosage: 15 MG, DAILY (10 MG AT BREAKFAST AND 5 MG AT DINNER)
  50. ENALAPRIL [Concomitant]
     Active Substance: ENALAPRIL
     Dosage: 20 MG, 2X/DAY (10 MG 2 TABLETS 12/12H)
  51. DIOVAN [Concomitant]
     Active Substance: VALSARTAN
     Indication: HYPERTENSION
     Dosage: STRENGTH 160MG, UNK
     Dates: start: 2007
  52. TAMARINE                           /05944101/ [Concomitant]
     Indication: CONSTIPATION
     Dosage: UNK
  53. DEPAKENE [Concomitant]
     Active Substance: VALPROIC ACID
     Dosage: UNK
  54. CARISOPRODOL W/PARACETAMOL/PHENYLBUTAZONE [Concomitant]
     Dosage: 00 MG PARACETAMOL / 150 MG CARISOPRODOL / 75 MG PHENYLBUTAZONE
  55. TENORETIC [Concomitant]
     Active Substance: ATENOLOL\CHLORTHALIDONE
     Dosage: 1 DF, DAILY (10/25 MG) 1 TABLET IN THE MORNING

REACTIONS (7)
  - Cartilage atrophy [Unknown]
  - Liver disorder [Unknown]
  - Application site haemorrhage [Unknown]
  - Renal disorder [Unknown]
  - Injection site pain [Unknown]
  - Nephrolithiasis [Unknown]
  - Hepatic steatosis [Unknown]

NARRATIVE: CASE EVENT DATE: 2011
